FAERS Safety Report 6295768-6 (Version None)
Quarter: 2009Q3

REPORT INFORMATION
  Report Type: 
  Country: None (occurrence: None)
  Receive Date: 20090731
  Receipt Date: 20090720
  Transmission Date: 20100115
  Serious: Yes (Death, Hospitalization)
  Sender: FDA-Public Use
  Company Number: 297441

PATIENT
  Age: 65 Year
  Sex: Male

DRUGS (11)
  1. PRECEDEX [Suspect]
     Indication: DRUG USE FOR UNKNOWN INDICATION
     Dates: start: 20090101, end: 20090101
  2. ALL OTHER THERAPEUTIC PRODUCTS [Suspect]
     Indication: IDIOPATHIC PULMONARY FIBROSIS
     Dosage: 600MG DAILY, ORAL, 600 MG DAILY, ORAL, 600 MG DAILY, ORAL
     Route: 048
     Dates: start: 20090408, end: 20090511
  3. ALL OTHER THERAPEUTIC PRODUCTS [Suspect]
     Indication: IDIOPATHIC PULMONARY FIBROSIS
     Dosage: 600MG DAILY, ORAL, 600 MG DAILY, ORAL, 600 MG DAILY, ORAL
     Route: 048
     Dates: start: 20090511, end: 20090515
  4. ALL OTHER THERAPEUTIC PRODUCTS [Suspect]
     Indication: IDIOPATHIC PULMONARY FIBROSIS
     Dosage: 600MG DAILY, ORAL, 600 MG DAILY, ORAL, 600 MG DAILY, ORAL
     Route: 048
     Dates: start: 20090518, end: 20090520
  5. CIPROXAN /00697202/) [Suspect]
     Indication: DRUG USE FOR UNKNOWN INDICATION
     Dates: start: 20090101, end: 20090101
  6. TIENAM [Suspect]
     Indication: DRUG USE FOR UNKNOWN INDICATION
     Dates: start: 20090101, end: 20090101
  7. ELASPOL /01588701/) [Suspect]
     Indication: DRUG USE FOR UNKNOWN INDICATION
     Dates: start: 20090101, end: 20090101
  8. FRAGMIN [Suspect]
     Indication: DRUG USE FOR UNKNOWN INDICATION
     Dates: start: 20090101, end: 20090101
  9. NEORAL [Suspect]
     Indication: DRUG USE FOR UNKNOWN INDICATION
     Dates: start: 20090101, end: 20090101
  10. BACTRAMIN [Suspect]
     Indication: DRUG USE FOR UNKNOWN INDICATION
     Dates: start: 20090101, end: 20090101
  11. OMEPRAL /00661201/) [Suspect]
     Indication: DRUG USE FOR UNKNOWN INDICATION
     Dates: start: 20090101, end: 20090101

REACTIONS (5)
  - CONDITION AGGRAVATED [None]
  - IDIOPATHIC PULMONARY FIBROSIS [None]
  - PLATELET COUNT DECREASED [None]
  - VOMITING [None]
  - WHITE BLOOD CELL COUNT DECREASED [None]
